FAERS Safety Report 9402426 (Version 1)
Quarter: 2013Q3

REPORT INFORMATION
  Report Type: Spontaneous
  Country: US (occurrence: None)
  Receive Date: 20130712
  Receipt Date: 20130712
  Transmission Date: 20140515
  Serious: No
  Sender: FDA-Public Use
  Company Number: None

PATIENT
  Age: 75 Year
  Sex: Female
  Weight: 64.41 kg

DRUGS (1)
  1. BETHANECHOL [Suspect]
     Indication: BLADDER DISORDER
     Route: 048
     Dates: start: 20130317, end: 20130630

REACTIONS (7)
  - Cystitis [None]
  - Alopecia [None]
  - Sciatica [None]
  - Nausea [None]
  - Visual impairment [None]
  - Headache [None]
  - Salivary hypersecretion [None]
